FAERS Safety Report 7404790-5 (Version None)
Quarter: 2011Q2

REPORT INFORMATION
  Report Type: 
  Country: None (occurrence: None)
  Receive Date: 20110411
  Receipt Date: 20101123
  Transmission Date: 20111010
  Serious: Yes (Other)
  Sender: FDA-Public Use
  Company Number: US-BAYER-201012264NA

PATIENT
  Age: 25 Year
  Sex: Female
  Weight: 89 kg

DRUGS (4)
  1. YAZ [Suspect]
     Indication: CONTRACEPTION
     Dosage: UNK
     Dates: start: 20090501, end: 20091001
  2. PRENATAL [Concomitant]
  3. ZEGERID [Concomitant]
     Indication: ABDOMINAL PAIN UPPER
     Dosage: 40 MG, UNK
     Dates: start: 20090801, end: 20091201
  4. YASMIN [Suspect]
     Indication: CONTRACEPTION
     Dosage: UNK
     Route: 048
     Dates: start: 20070601, end: 20090401

REACTIONS (8)
  - GALLBLADDER DISORDER [None]
  - ABDOMINAL PAIN UPPER [None]
  - CHOLECYSTITIS CHRONIC [None]
  - PAIN [None]
  - NAUSEA [None]
  - VOMITING [None]
  - GALLBLADDER CHOLESTEROLOSIS [None]
  - GASTROOESOPHAGEAL REFLUX DISEASE [None]
